FAERS Safety Report 4913853-5 (Version None)
Quarter: 2006Q1

REPORT INFORMATION
  Report Type: 
  Country: None (occurrence: None)
  Receive Date: 20060216
  Receipt Date: 20051013
  Transmission Date: 20060701
  Serious: Yes (Hospitalization, Other)
  Sender: FDA-Public Use
  Company Number: US-MERCK-0510USA07302

PATIENT
  Age: 53 Year
  Sex: Male
  Weight: 97 kg

DRUGS (7)
  1. VIOXX [Suspect]
     Indication: ARTHRITIS
     Route: 048
     Dates: start: 20020101, end: 20021101
  2. VIOXX [Suspect]
     Indication: MYALGIA
     Route: 048
     Dates: start: 20020101, end: 20021101
  3. COUMADIN [Concomitant]
     Route: 065
  4. GLIPIZIDE [Concomitant]
     Indication: DIABETES MELLITUS
     Route: 065
  5. ATENOLOL [Concomitant]
     Indication: BLOOD PRESSURE
     Route: 065
  6. AVANDIA [Concomitant]
     Indication: DIABETES MELLITUS
     Route: 065
  7. CELEBREX [Concomitant]
     Indication: PAIN
     Route: 065
     Dates: start: 20000101, end: 20030101

REACTIONS (7)
  - BLOOD CHOLESTEROL INCREASED [None]
  - CEREBROVASCULAR ACCIDENT [None]
  - CHEST PAIN [None]
  - FATIGUE [None]
  - GALLBLADDER DISORDER [None]
  - PALPITATIONS [None]
  - TRANSIENT ISCHAEMIC ATTACK [None]
